FAERS Safety Report 6283193-3 (Version None)
Quarter: 2009Q3

REPORT INFORMATION
  Report Type: 
  Country: None (occurrence: None)
  Receive Date: 20090724
  Receipt Date: 20090715
  Transmission Date: 20100115
  Serious: Yes (Other)
  Sender: FDA-Public Use
  Company Number: B0585491A

PATIENT
  Sex: Female
  Weight: 63 kg

DRUGS (3)
  1. LAMICTAL [Suspect]
     Indication: OBSESSIVE-COMPULSIVE DISORDER
     Route: 048
     Dates: start: 20090224, end: 20090330
  2. BETA BLOCKER [Concomitant]
     Indication: MIGRAINE
  3. UNKNOWN DRUG [Concomitant]

REACTIONS (5)
  - ASTHENIA [None]
  - CARDIAC ARREST [None]
  - PALPITATIONS [None]
  - SINUS BRADYCARDIA [None]
  - VENTRICULAR EXTRASYSTOLES [None]
